FAERS Safety Report 5599964-2 (Version None)
Quarter: 2008Q1

REPORT INFORMATION
  Report Type: 
  Country: None (occurrence: None)
  Receive Date: 20080123
  Receipt Date: 20080115
  Transmission Date: 20080703
  Serious: Yes (Hospitalization, Other)
  Sender: FDA-Public Use
  Company Number: JP-NOVOPROD-265529

PATIENT
  Sex: Female
  Weight: 65 kg

DRUGS (12)
  1. NOVOLOG MIX 70/30 [Suspect]
     Indication: INSULIN-REQUIRING TYPE 2 DIABETES MELLITUS
     Dosage: 34 IU, QD
     Route: 058
     Dates: start: 20070113, end: 20070712
  2. LANIRAPID [Concomitant]
     Dosage: .1 MG, QD
     Route: 048
     Dates: start: 20060414
  3. URSO                               /00465701/ [Concomitant]
     Dosage: 600 MG, QD
     Route: 048
     Dates: start: 20060324
  4. PREDNISOLONE [Concomitant]
     Dosage: 5 MG, QD
     Route: 048
     Dates: start: 20061117
  5. LENDORMIN [Concomitant]
     Dosage: .25 MG, QD
     Route: 048
  6. FUROSEMIDE [Concomitant]
     Dosage: 10 MG, QD
     Route: 048
     Dates: start: 20070414, end: 20070711
  7. WARFARIN SODIUM [Concomitant]
     Dosage: .5 MG, QD
     Route: 048
     Dates: start: 20070414, end: 20070711
  8. BAKTAR [Concomitant]
     Dosage: 4 G TWICE A WEEK
     Dates: start: 20061214, end: 20070711
  9. TAKEPRON [Concomitant]
     Dosage: 15 MG, QD
     Route: 048
     Dates: start: 20061214, end: 20070711
  10. ROCALTROL [Concomitant]
  11. CRESTOR [Concomitant]
     Dosage: 2.5 MG, QD
     Route: 048
     Dates: start: 20060516, end: 20070711
  12. VASOLAN                            /00014302/ [Concomitant]

REACTIONS (3)
  - HAEMORRHAGIC DIATHESIS [None]
  - HEPATIC CIRRHOSIS [None]
  - IDIOPATHIC THROMBOCYTOPENIC PURPURA [None]
